FAERS Safety Report 10169957 (Version 2)
Quarter: 2014Q2

REPORT INFORMATION
  Report Type: Spontaneous
  Country: US (occurrence: US)
  Receive Date: 20140513
  Receipt Date: 20140630
  Transmission Date: 20141212
  Serious: Yes (Hospitalization, Other)
  Sender: FDA-Public Use
  Company Number: US-JNJFOC-20140504685

PATIENT
  Age: 35 Year
  Sex: Female
  Weight: 61.24 kg

DRUGS (5)
  1. REMICADE [Suspect]
     Indication: PSORIASIS
     Route: 042
     Dates: start: 201108
  2. OVIDREL [Suspect]
     Indication: IN VITRO FERTILISATION
     Route: 065
     Dates: start: 20140107
  3. MENOPUR [Suspect]
     Indication: IN VITRO FERTILISATION
     Dosage: 75 UNITS SYRINGE
     Route: 065
     Dates: start: 20140107
  4. GANIRELIX [Suspect]
     Indication: IN VITRO FERTILISATION
     Dosage: 75 UNITS SYRINGE
     Route: 065
     Dates: start: 20140107
  5. GONAL F [Suspect]
     Indication: IN VITRO FERTILISATION
     Dosage: 75 UNITS SYRINGE
     Route: 065
     Dates: start: 20140107

REACTIONS (2)
  - Abortion spontaneous [Recovered/Resolved]
  - Exposure during pregnancy [Recovered/Resolved]
